FAERS Safety Report 12448408 (Version 6)
Quarter: 2018Q1

REPORT INFORMATION
  Report Type: Report from Study
  Country: CA (occurrence: CA)
  Receive Date: 20160608
  Receipt Date: 20180208
  Transmission Date: 20180508
  Serious: Yes (Hospitalization, Other)
  Sender: FDA-Public Use
  Company Number: CA-INCYTE CORPORATION-2016IN001498

PATIENT

DRUGS (14)
  1. COUMADIN [Concomitant]
     Active Substance: WARFARIN SODIUM
     Dosage: DOSE ALTERNATES BETWEEN 10 AND 12
     Route: 065
  2. VITAMINS NOS [Concomitant]
     Active Substance: VITAMINS
     Indication: PRODUCT USED FOR UNKNOWN INDICATION
     Dosage: UNK
     Route: 065
  3. COUMADIN [Concomitant]
     Active Substance: WARFARIN SODIUM
     Indication: PRODUCT USED FOR UNKNOWN INDICATION
     Dosage: 12 MG, QD
     Route: 065
  4. VITAMINS NOS [Concomitant]
     Active Substance: VITAMINS
     Route: 065
  5. COUMADIN [Concomitant]
     Active Substance: WARFARIN SODIUM
     Dosage: 12 MG, QOD (DOSE ALTERNATES BETWEEN 10 AND 12)
  6. HYDROXYUREA. [Concomitant]
     Active Substance: HYDROXYUREA
     Indication: PRODUCT USED FOR UNKNOWN INDICATION
     Route: 065
  7. JAKAVI [Suspect]
     Active Substance: RUXOLITINIB
     Dosage: 10 MG, QD
     Route: 048
     Dates: start: 20171210
  8. JAKAVI [Suspect]
     Active Substance: RUXOLITINIB
     Indication: POLYCYTHAEMIA VERA
     Dosage: 10 MG, BID
     Route: 048
     Dates: start: 20160223
  9. VITAMINS NOS [Concomitant]
     Active Substance: VITAMINS
     Dosage: UNK
     Route: 065
  10. NADOLOL. [Concomitant]
     Active Substance: NADOLOL
     Indication: PRODUCT USED FOR UNKNOWN INDICATION
     Dosage: 40 MG, QD
     Route: 065
  11. NADOLOL. [Concomitant]
     Active Substance: NADOLOL
     Dosage: UNK
     Route: 065
  12. PANTOPRAZOLE [Concomitant]
     Active Substance: PANTOPRAZOLE
     Indication: PRODUCT USED FOR UNKNOWN INDICATION
     Dosage: 40 MG, QD
     Route: 065
  13. PANTOPRAZOLE [Concomitant]
     Active Substance: PANTOPRAZOLE
     Dosage: 40 MG, QD
     Route: 065
  14. NADOLOL. [Concomitant]
     Active Substance: NADOLOL
     Dosage: 40 MG, QD
     Route: 065

REACTIONS (31)
  - Feeling abnormal [Unknown]
  - Photophobia [Unknown]
  - Thrombosis [Unknown]
  - Gastric dilatation [Unknown]
  - Hypersomnia [Unknown]
  - Skin haemorrhage [Unknown]
  - Posture abnormal [Unknown]
  - Balance disorder [Unknown]
  - Muscle spasms [Unknown]
  - International normalised ratio increased [Unknown]
  - Gastric disorder [Unknown]
  - Gait inability [Unknown]
  - Renal pain [Unknown]
  - Back pain [Unknown]
  - Iron deficiency [Unknown]
  - Dizziness [Unknown]
  - Malaise [Unknown]
  - International normalised ratio decreased [Unknown]
  - Weight increased [Unknown]
  - Abdominal pain [Unknown]
  - Rectal haemorrhage [Unknown]
  - Dysphagia [Unknown]
  - Cerebrovascular accident [Unknown]
  - Abdominal distension [Unknown]
  - Immune system disorder [Unknown]
  - Acne [Unknown]
  - Excessive cerumen production [Unknown]
  - Movement disorder [Unknown]
  - Platelet count increased [Unknown]
  - Musculoskeletal stiffness [Unknown]
  - Constipation [Unknown]

NARRATIVE: CASE EVENT DATE: 20160526
